FAERS Safety Report 17912977 (Version 1)
Quarter: 2020Q2

REPORT INFORMATION
  Report Type: Spontaneous
  Country: PT (occurrence: PT)
  Receive Date: 20200618
  Receipt Date: 20200618
  Transmission Date: 20200714
  Serious: Yes (Other)
  Sender: FDA-Public Use
  Company Number: PT-TEVA-2020-PT-1778055

PATIENT
  Age: 74 Year
  Sex: Male

DRUGS (7)
  1. BISOPROLOL [Concomitant]
     Active Substance: BISOPROLOL
  2. CLONAZEPAM. [Concomitant]
     Active Substance: CLONAZEPAM
  3. SEVELAMER [Concomitant]
     Active Substance: SEVELAMER
  4. SIMVASTATIN. [Concomitant]
     Active Substance: SIMVASTATIN
  5. HYDROXYCHLOROQUINE [Suspect]
     Active Substance: HYDROXYCHLOROQUINE
     Indication: COVID-19
     Dosage: 200MG 3XS / WEEK POST HEMODIALYSIS, 600 MG
     Route: 048
     Dates: start: 20200402, end: 20200409
  6. OMEPRAZOLE. [Concomitant]
     Active Substance: OMEPRAZOLE
  7. ACETYLSALICYLIC ACID [Concomitant]
     Active Substance: ASPIRIN

REACTIONS (2)
  - Atrial fibrillation [Not Recovered/Not Resolved]
  - COVID-19 treatment [Unknown]

NARRATIVE: CASE EVENT DATE: 20200402
